FAERS Safety Report 5103432-1 (Version None)
Quarter: 2006Q3

REPORT INFORMATION
  Report Type: 
  Country: None (occurrence: None)
  Receive Date: 20060731
  Receipt Date: 20060310
  Transmission Date: 20061208
  Serious: Yes (Other)
  Sender: FDA-Public Use
  Company Number: US-JNJFOC-20060303083

PATIENT
  Sex: Female

DRUGS (2)
  1. RISPERDAL [Suspect]
     Indication: DRUG USE FOR UNKNOWN INDICATION
     Dosage: 2 MG , ORAL
     Route: 048
  2. ZOLOFT [Concomitant]

REACTIONS (3)
  - CHEST DISCOMFORT [None]
  - OEDEMA PERIPHERAL [None]
  - WEIGHT INCREASED [None]
